FAERS Safety Report 8298419-4 (Version None)
Quarter: 2012Q2

REPORT INFORMATION
  Report Type: 
  Country: None (occurrence: None)
  Receive Date: 20120419
  Receipt Date: 20110422
  Transmission Date: 20120825
  Serious: Yes (Hospitalization, Other)
  Sender: FDA-Public Use
  Company Number: US-BAYER-201039875NA

PATIENT
  Age: 18 Year
  Sex: Female
  Weight: 64.853 kg

DRUGS (6)
  1. RESPIRATORY SYSTEM [Concomitant]
  2. SUDAFED 12 HOUR [Concomitant]
     Dosage: UNK UNK, PRN
  3. MULTI-VITAMIN [Concomitant]
     Dosage: UNK
     Dates: start: 20070101
  4. OTHER ANALGESICS AND ANTIPYRETICS [Concomitant]
     Dosage: UNK UNK, QID
  5. YAZ [Suspect]
     Indication: PREMENSTRUAL SYNDROME
     Route: 048
     Dates: start: 20070701, end: 20071001
  6. TYLENOL (CAPLET) [Concomitant]

REACTIONS (2)
  - PULMONARY EMBOLISM [None]
  - DEEP VEIN THROMBOSIS [None]
